FAERS Safety Report 7635664-2 (Version None)
Quarter: 2011Q3

REPORT INFORMATION
  Report Type: 
  Country: None (occurrence: None)
  Receive Date: 20110726
  Receipt Date: 20110721
  Transmission Date: 20111222
  Serious: Yes (Other)
  Sender: FDA-Public Use
  Company Number: US-SANOFI-AVENTIS-2011SA046949

PATIENT
  Age: 68 Year
  Sex: Female

DRUGS (4)
  1. MULTAQ [Suspect]
     Route: 048
     Dates: start: 20110718
  2. DILTIAZEM HYDROCHLORIDE [Suspect]
     Route: 065
  3. DIGOXIN [Concomitant]
  4. MULTAQ [Suspect]
     Indication: ATRIAL FIBRILLATION
     Route: 048
     Dates: start: 20110718

REACTIONS (3)
  - HEART RATE IRREGULAR [None]
  - OEDEMA [None]
  - ATRIAL FIBRILLATION [None]
